FAERS Safety Report 9501895 (Version 1)
Quarter: 2013Q3

REPORT INFORMATION
  Report Type: Spontaneous
  Country: US (occurrence: US)
  Receive Date: 20130905
  Receipt Date: 20130905
  Transmission Date: 20140515
  Serious: No
  Sender: FDA-Public Use
  Company Number: US-ASTRAZENECA-2013SE47107

PATIENT
  Age: 84 Year
  Sex: Female
  Weight: 59.4 kg

DRUGS (6)
  1. SYMBICORT [Suspect]
     Indication: CHRONIC OBSTRUCTIVE PULMONARY DISEASE
     Dosage: 80 MCG BID
     Route: 055
     Dates: start: 20130614
  2. EVISTA [Concomitant]
  3. TIMOLOL [Concomitant]
  4. LUBICAN [Concomitant]
  5. ACIPHEX [Concomitant]
  6. PRAVASTATIN [Concomitant]

REACTIONS (3)
  - Nausea [Unknown]
  - Off label use [Unknown]
  - Off label use [Unknown]
